FAERS Safety Report 9030191 (Version 1)
Quarter: 2013Q1

REPORT INFORMATION
  Report Type: Spontaneous
  Country: US (occurrence: US)
  Receive Date: 20130125
  Receipt Date: 20130125
  Transmission Date: 20140127
  Serious: No
  Sender: FDA-Public Use
  Company Number: US-PFIZER INC-2013029851

PATIENT
  Age: 43 Year
  Sex: Female

DRUGS (4)
  1. ENBREL [Suspect]
     Indication: RHEUMATOID ARTHRITIS
     Dosage: UNK
  2. XELJANZ [Suspect]
     Indication: RHEUMATOID ARTHRITIS
     Dosage: 5 MG, 2X/DAY
     Route: 048
     Dates: start: 20121122
  3. XIFAXAN [Concomitant]
     Dosage: 200 MG, TID
  4. MAXALT [Concomitant]
     Dosage: 10 MG, FOR THREE DAYS.

REACTIONS (3)
  - Pyrexia [Recovered/Resolved]
  - Headache [Recovered/Resolved]
  - Confusional state [Recovered/Resolved]
